FAERS Safety Report 6041060-4 (Version None)
Quarter: 2009Q1

REPORT INFORMATION
  Report Type: 
  Country: None (occurrence: None)
  Receive Date: 20090116
  Receipt Date: 20080807
  Transmission Date: 20090719
  Serious: No
  Sender: FDA-Public Use
  Company Number: US-BRISTOL-MYERS SQUIBB COMPANY-14293062

PATIENT
  Age: 67 Year
  Sex: Female
  Weight: 135 kg

DRUGS (4)
  1. ABILIFY [Suspect]
     Indication: BIPOLAR I DISORDER
  2. SYNTHROID [Concomitant]
  3. KLONOPIN [Concomitant]
  4. PROZAC [Concomitant]

REACTIONS (1)
  - HYPERPROLACTINAEMIA [None]
